FAERS Safety Report 23866540 (Version 1)
Quarter: 2024Q2

REPORT INFORMATION
  Report Type: Spontaneous
  Country: CN (occurrence: CN)
  Receive Date: 20240517
  Receipt Date: 20240517
  Transmission Date: 20240716
  Serious: Yes (Other)
  Sender: FDA-Public Use
  Company Number: CN-TAKEDA-2024TUS046765

PATIENT
  Age: 57 Year
  Sex: Male

DRUGS (5)
  1. PONATINIB [Suspect]
     Active Substance: PONATINIB
     Indication: B-cell type acute leukaemia
     Dosage: UNK
     Route: 065
  2. VENETOCLAX [Suspect]
     Active Substance: VENETOCLAX
     Indication: B-cell type acute leukaemia
     Dosage: 100 MILLIGRAM
     Route: 065
  3. VENETOCLAX [Suspect]
     Active Substance: VENETOCLAX
     Dosage: 200 MILLIGRAM
     Route: 065
  4. VENETOCLAX [Suspect]
     Active Substance: VENETOCLAX
     Dosage: 400 MILLIGRAM
     Route: 065
  5. AZACITIDINE [Suspect]
     Active Substance: AZACITIDINE
     Indication: B-cell type acute leukaemia
     Dosage: 75 MILLIGRAM/SQ. METER, QD
     Route: 065

REACTIONS (4)
  - Agranulocytosis [Unknown]
  - Thrombocytopenia [Unknown]
  - Anaemia [Unknown]
  - Off label use [Unknown]
